FAERS Safety Report 6919587-X (Version None)
Quarter: 2010Q3

REPORT INFORMATION
  Report Type: 
  Country: None (occurrence: None)
  Receive Date: 20100811
  Receipt Date: 20100804
  Transmission Date: 20110219
  Serious: Yes (Other)
  Sender: FDA-Public Use
  Company Number: US-MERCK-1008USA00519

PATIENT
  Sex: Male

DRUGS (2)
  1. ZOCOR [Suspect]
     Route: 048
     Dates: start: 20100326, end: 20100301
  2. NORVIR [Suspect]
     Indication: ACQUIRED IMMUNODEFICIENCY SYNDROME
     Route: 048
     Dates: start: 20090101

REACTIONS (2)
  - BLOOD CREATININE INCREASED [None]
  - DYSPNOEA [None]
